FAERS Safety Report 6138913-5 (Version None)
Quarter: 2009Q1

REPORT INFORMATION
  Report Type: 
  Country: None (occurrence: None)
  Receive Date: 20090331
  Receipt Date: 20090326
  Transmission Date: 20090719
  Serious: No
  Sender: FDA-Public Use
  Company Number: US-B.I. PHARMACEUTICALS,INC./RIDGEFIELD-2009-BP-03430BP

PATIENT
  Sex: Female

DRUGS (3)
  1. SPIRIVA [Suspect]
     Indication: CHRONIC OBSTRUCTIVE PULMONARY DISEASE
     Dosage: 18MCG
     Route: 055
     Dates: start: 20040101
  2. SYNTHROID [Concomitant]
     Indication: HYPOTHYROIDISM
     Dosage: .88MG
     Route: 048
     Dates: start: 19940101
  3. XOPENEX [Concomitant]
     Indication: CHRONIC OBSTRUCTIVE PULMONARY DISEASE
     Dosage: 5MG
     Route: 055
     Dates: start: 20040101

REACTIONS (5)
  - DRY SKIN [None]
  - INCORRECT ROUTE OF DRUG ADMINISTRATION [None]
  - PRURITUS [None]
  - RASH [None]
  - TINEA PEDIS [None]
